FAERS Safety Report 5253922-6 (Version None)
Quarter: 2007Q1

REPORT INFORMATION
  Report Type: 
  Country: None (occurrence: None)
  Receive Date: 20070228
  Receipt Date: 20070228
  Transmission Date: 20070707
  Serious: No
  Sender: FDA-Public Use
  Company Number: None

PATIENT
  Age: 33 Year
  Sex: Male
  Weight: 83.9154 kg

DRUGS (1)
  1. SEPTOCAINE [Suspect]
     Indication: TOOTH REPAIR
     Dosage: 3.4 ML 3 INJECTIONS LEFT INFERIOR AVEOL NERVE BLOCK
     Dates: start: 20061010

REACTIONS (3)
  - ANAESTHETIC COMPLICATION [None]
  - NERVE INJURY [None]
  - PARAESTHESIA ORAL [None]
